FAERS Safety Report 8883706 (Version 1)
Quarter: 2012Q4

REPORT INFORMATION
  Report Type: 
  Country: US (occurrence: US)
  Receive Date: 20121102
  Receipt Date: 20121102
  Transmission Date: 20130627
  Serious: No
  Sender: FDA-Public Use
  Company Number: US-GLAXOSMITHKLINE-A0992164A

PATIENT
  Age: 77 Year
  Sex: Female

DRUGS (7)
  1. HORIZANT [Suspect]
     Indication: RESTLESS LEGS SYNDROME
     Dosage: 600MG Per day
     Route: 048
     Dates: start: 2012
  2. NEURONTIN [Concomitant]
  3. METFORMIN [Concomitant]
  4. SYNTHROID [Concomitant]
  5. ZETIA [Concomitant]
  6. ACCURETIC [Concomitant]
  7. PROTONIX [Concomitant]

REACTIONS (2)
  - Insomnia [Recovering/Resolving]
  - Drug ineffective [Unknown]
